FAERS Safety Report 12213734 (Version 1)
Quarter: 2016Q1

REPORT INFORMATION
  Report Type: Spontaneous
  Country: US (occurrence: US)
  Receive Date: 20160328
  Receipt Date: 20160328
  Transmission Date: 20160526
  Serious: Yes (Other)
  Sender: FDA-Public Use
  Company Number: US-GLAXOSMITHKLINE-US2016039857

PATIENT
  Age: 47 Year
  Sex: Female

DRUGS (1)
  1. FLONASE ALLERGY RELIEF [Suspect]
     Active Substance: FLUTICASONE PROPIONATE
     Indication: HYPERSENSITIVITY
     Dosage: UNK
     Dates: start: 20151021

REACTIONS (3)
  - Visual impairment [Unknown]
  - Visual acuity reduced [Recovering/Resolving]
  - Colour blindness acquired [Unknown]

NARRATIVE: CASE EVENT DATE: 20151108
